FAERS Safety Report 24667385 (Version 1)
Quarter: 2024Q4

REPORT INFORMATION
  Report Type: Other
  Country: US (occurrence: US)
  Receive Date: 20241126
  Receipt Date: 20241126
  Transmission Date: 20250114
  Serious: Yes (Life-Threatening)
  Sender: VITRUVIAS THERAPEUTICS
  Company Number: US-Vitruvias Therapeutics-2166050

PATIENT
  Age: 37 Year
  Sex: Male
  Weight: 73.3 kg

DRUGS (1)
  1. LIDOCAINE [Suspect]
     Active Substance: LIDOCAINE

REACTIONS (1)
  - Local anaesthetic systemic toxicity [Recovered/Resolved]
